FAERS Safety Report 10362046 (Version 1)
Quarter: 2014Q1

REPORT INFORMATION
  Report Type: Report from Study
  Country: US (occurrence: None)
  Receive Date: 20140306
  Receipt Date: 20140306
  Transmission Date: 20141002
  Serious: Yes (Hospitalization)
  Sender: FDA-Public Use
  Company Number: 163-21880-13053441

PATIENT
  Age: 75 Year
  Sex: Male
  Weight: 96.5 kg

DRUGS (40)
  1. REVLIMID (LENALIDOMIDE) (CAPSULES) [Suspect]
     Indication: PLASMA CELL MYELOMA
     Route: 048
     Dates: start: 20120816, end: 20130320
  2. DEXAMETHASONE (DEXAMETHASONE) [Suspect]
     Indication: PLASMA CELL MYELOMA
     Route: 048
     Dates: start: 20120816, end: 20130321
  3. ELOTUZUMAB (ELOTUZUMAB) (UNKNOWN) [Suspect]
     Indication: PLASMA CELL MYELOMA
     Route: 042
     Dates: start: 20120817, end: 20130314
  4. MOXIFLOXACIN (MOXIFLOXACIN) [Concomitant]
  5. ATENOLOL (ATENOLOL) [Concomitant]
  6. ASPIRIN (ACETYLSALICYLIC ACID) [Concomitant]
  7. WARFARIN (WARFARIN) [Concomitant]
  8. CENTRUM SILVER (CENTRUM SILVER) [Concomitant]
  9. ROSUVASTATIN (ROSUVASTATIN) [Concomitant]
  10. OMEPRAZOLE (OMEPRAZOLE) [Concomitant]
  11. HYDRALAZINE (HYDRALAZINE) [Concomitant]
  12. ISOSORBIDE MONONITRATE (ISOSORBIDE MONONITRATE) [Concomitant]
  13. OCUVITE (OCUVITE) [Concomitant]
  14. AQUAPHOR (OTHER THERAPEUTIC PRODUCTS) [Concomitant]
  15. ALBUTEROL SULFATE (SALBUTAMOL SULFATE) [Concomitant]
  16. AUGMENTIN [Concomitant]
  17. MUCINEX (GUAIFENESIN) [Concomitant]
  18. ATROVENT (IPRATROPIUM BROMIDE) [Concomitant]
  19. ZITHROMAX (AZITHROMYCIN) [Concomitant]
  20. TESSALON PERLES (BENZONATATE) [Concomitant]
  21. BUDESONIDE (BUDESONIDE) [Concomitant]
  22. SODIUM CHLORIDE (SODIUM CHLORIDE) [Concomitant]
  23. ROBITUSSIN AC (ROBITUSSIN A-C/OLD FORM/) [Concomitant]
  24. CEFTRIAXONE (CEFTRIAXONE) [Concomitant]
  25. LASIX (FUROSEMIDE) [Concomitant]
  26. KLOR (POTASSIUM CHLORIDE) [Concomitant]
  27. SOLU-MEDROL (METHYLPREDNISOLONE SODIUM SUCCINATE) [Concomitant]
  28. MAGNESIUM CHLORIDE (MAGNESIUM OXIDE) [Concomitant]
  29. POTASSIUM PHOSPHATE (NEUTRA-PHOS-K) [Concomitant]
  30. PACKED RED BLOOD CELLS (BLOOD CELLS, PACKED HUMAN) [Concomitant]
  31. ALBUTEROL NEBULIZER (SALBUTAMOL) [Concomitant]
  32. PREDNISONE (PREDNISONE) [Concomitant]
  33. ACICLOVIR (ACICLOVIR) [Concomitant]
  34. CARVEDILOL (CARVEDILOL) [Concomitant]
  35. LISINOPRIL (LISINOPRIL) [Concomitant]
  36. LIPITOR (ATORVASTATIN) [Concomitant]
  37. POTASSIUM CHLORIDE (POTASSIUM CHLORIDE) [Concomitant]
  38. MAGNESIUM CHLORIDE (MAGNESIUM CHLORIDE ANHYDROUS) [Concomitant]
  39. TYLENOL (PARACETAMOL) [Concomitant]
  40. PLATELETS (PLATELETS) [Concomitant]

REACTIONS (2)
  - Cardiac failure acute [None]
  - Condition aggravated [None]
